FAERS Safety Report 7487723-5 (Version None)
Quarter: 2011Q2

REPORT INFORMATION
  Report Type: 
  Country: None (occurrence: None)
  Receive Date: 20110518
  Receipt Date: 20110509
  Transmission Date: 20111010
  Serious: Yes (Hospitalization)
  Sender: FDA-Public Use
  Company Number: ES-BRISTOL-MYERS SQUIBB COMPANY-15751266

PATIENT
  Age: 83 Year
  Sex: Female

DRUGS (1)
  1. METFORMIN HCL [Suspect]
     Indication: TYPE 2 DIABETES MELLITUS
     Dosage: FILM COATED TABS
     Route: 048
     Dates: start: 20061025, end: 20101115

REACTIONS (2)
  - LACTIC ACIDOSIS [None]
  - HYPERKALAEMIA [None]
